FAERS Safety Report 6493049-9 (Version None)
Quarter: 2009Q4

REPORT INFORMATION
  Report Type: 
  Country: None (occurrence: None)
  Receive Date: 20091214
  Receipt Date: 20091208
  Transmission Date: 20100525
  Serious: Yes (Hospitalization)
  Sender: FDA-Public Use
  Company Number: US-ROCHE-673891

PATIENT
  Sex: Female
  Weight: 57.6 kg

DRUGS (12)
  1. BEVACIZUMAB [Suspect]
     Indication: COLON CANCER
     Dosage: CYCLIC
     Route: 042
     Dates: start: 20071106
  2. FLUOROURACIL [Suspect]
     Indication: COLON CANCER
     Dosage: CYCLIC
     Route: 042
     Dates: start: 20071106
  3. FLUOROURACIL [Suspect]
     Route: 042
  4. AXITINIB [Suspect]
     Indication: COLON CANCER
     Dosage: DRUG REPORTED AS AG-013736
     Route: 048
     Dates: start: 20071106, end: 20071109
  5. AXITINIB [Suspect]
     Route: 048
     Dates: start: 20071119
  6. OXALIPLATIN [Suspect]
     Indication: COLON CANCER
     Dosage: CYCLIC
     Route: 042
     Dates: start: 20071106
  7. FOLINIC ACID [Suspect]
     Indication: COLON CANCER
     Dosage: CYCLIC; DRUG REPORTED AS LEUCOVORIN
     Route: 042
     Dates: start: 20071106
  8. OXYCODONE [Concomitant]
     Dates: start: 20071105
  9. TYLOX [Concomitant]
  10. PHENERGAN HCL [Concomitant]
  11. COLACE [Concomitant]
     Route: 048
  12. PROMETHAZINE [Concomitant]
     Dates: start: 20071101

REACTIONS (4)
  - DECREASED APPETITE [None]
  - NAUSEA [None]
  - PERIPHERAL MOTOR NEUROPATHY [None]
  - VOMITING [None]
